FAERS Safety Report 18327820 (Version 3)
Quarter: 2021Q1

REPORT INFORMATION
  Report Type: Spontaneous
  Country: CA (occurrence: CA)
  Receive Date: 20200929
  Receipt Date: 20210115
  Transmission Date: 20210419
  Serious: Yes (Other)
  Sender: FDA-Public Use
  Company Number: CA-SHIRE-CA202030740

PATIENT
  Age: 64 Year
  Sex: Female
  Weight: 85 kg

DRUGS (9)
  1. RANITIDINE. [Concomitant]
     Active Substance: RANITIDINE
     Indication: PRODUCT USED FOR UNKNOWN INDICATION
     Dosage: 150 MILLIGRAM, BID
     Route: 048
     Dates: start: 20200806, end: 20200807
  2. GAMMAGARD LIQUID [Suspect]
     Active Substance: HUMAN IMMUNOGLOBULIN G
     Dosage: 2 GRAM PER KILOGRAM, OVER 4 DAYS
     Route: 042
     Dates: start: 20200731, end: 20200731
  3. RITUXAN [Concomitant]
     Active Substance: RITUXIMAB
     Indication: PRODUCT USED FOR UNKNOWN INDICATION
     Dosage: UNK
     Dates: start: 20200805
  4. FRISIUM [Concomitant]
     Active Substance: CLOBAZAM
     Indication: PRODUCT USED FOR UNKNOWN INDICATION
  5. REACTINE [CETIRIZINE HYDROCHLORIDE] [Concomitant]
     Active Substance: CETIRIZINE HYDROCHLORIDE
     Dosage: UNK
     Route: 065
  6. GAMMAGARD LIQUID [Suspect]
     Active Substance: HUMAN IMMUNOGLOBULIN G
     Indication: AUTOIMMUNE ENCEPHALOPATHY
     Dosage: 30 GRAM
     Route: 065
  7. GAMMAGARD LIQUID [Suspect]
     Active Substance: HUMAN IMMUNOGLOBULIN G
     Dosage: 2 GRAM PER KILOGRAM, OVER 4 DAYS
     Route: 042
     Dates: end: 20200731
  8. PREDNISONE. [Concomitant]
     Active Substance: PREDNISONE
     Indication: PRODUCT USED FOR UNKNOWN INDICATION
     Dosage: UNK
  9. TOPICORT [HYDROCORTISONE ACETATE] [Concomitant]
     Active Substance: HYDROCORTISONE ACETATE
     Dosage: UNK
     Route: 061

REACTIONS (11)
  - Vertigo [Recovering/Resolving]
  - Hyperhidrosis [Recovering/Resolving]
  - Diarrhoea [Recovering/Resolving]
  - Product use in unapproved indication [Unknown]
  - Chest pain [Recovering/Resolving]
  - Urticaria [Recovering/Resolving]
  - Dizziness [Recovering/Resolving]
  - Cold sweat [Recovering/Resolving]
  - Pityriasis rubra pilaris [Recovering/Resolving]
  - Fatigue [Recovering/Resolving]
  - Dyspnoea [Recovering/Resolving]

NARRATIVE: CASE EVENT DATE: 20200816
